FAERS Safety Report 6831156-9 (Version None)
Quarter: 2010Q3

REPORT INFORMATION
  Report Type: 
  Country: None (occurrence: None)
  Receive Date: 20100712
  Receipt Date: 20100610
  Transmission Date: 20110219
  Serious: No
  Sender: FDA-Public Use
  Company Number: US-BAYER-201021445NA

PATIENT
  Sex: Female

DRUGS (1)
  1. BETASERON [Suspect]
     Indication: PRODUCT USED FOR UNKNOWN INDICATION
     Dosage: AUTOINJECTOR
     Route: 058
     Dates: start: 20070101

REACTIONS (3)
  - CONTUSION [None]
  - RASH MACULAR [None]
  - SCAR [None]
